FAERS Safety Report 16386298 (Version 2)
Quarter: 2019Q2

REPORT INFORMATION
  Report Type: Spontaneous
  Country: JP (occurrence: JP)
  Receive Date: 20190604
  Receipt Date: 20190618
  Transmission Date: 20190711
  Serious: Yes (Death)
  Sender: FDA-Public Use
  Company Number: JP-BEH-2019103018

PATIENT
  Age: 50 Year
  Sex: Male
  Weight: 60 kg

DRUGS (2)
  1. PRE-FILLED SYRINGE (DEVICE) [Suspect]
     Active Substance: DEVICE
     Indication: CHRONIC INFLAMMATORY DEMYELINATING POLYRADICULONEUROPATHY
     Dosage: 200 MG/KG, WEEKLY
     Route: 058
     Dates: start: 20190402
  2. PRE-FILLED SYRINGE (DEVICE) [Suspect]
     Active Substance: DEVICE
     Dosage: 400 MG/KG (60ML PER TIME), TWICE PER WEEK (ON CONSECUTIVE DAYS)
     Route: 058
     Dates: start: 20190409

REACTIONS (1)
  - Infection [Fatal]

NARRATIVE: CASE EVENT DATE: 20190530
